FAERS Safety Report 7627047-6 (Version None)
Quarter: 2011Q3

REPORT INFORMATION
  Report Type: 
  Country: None (occurrence: None)
  Receive Date: 20110714
  Receipt Date: 20110630
  Transmission Date: 20111222
  Serious: Yes (Death)
  Sender: FDA-Public Use
  Company Number: 970485

PATIENT
  Age: 15 Year
  Sex: Female

DRUGS (4)
  1. NITRIC OXIDE [Suspect]
     Indication: PULMONARY HYPERTENSION
  2. (OXYGEN) [Concomitant]
  3. (REMIFENTANIL) [Suspect]
     Indication: SEDATION
  4. MIDAZOLAM HCL [Suspect]
     Indication: PREMEDICATION

REACTIONS (2)
  - PULMONARY HYPERTENSION [None]
  - CARDIAC ARREST [None]
